FAERS Safety Report 11516685 (Version 1)
Quarter: 2015Q3

REPORT INFORMATION
  Report Type: Spontaneous
  Country: US (occurrence: None)
  Receive Date: 20150916
  Receipt Date: 20150916
  Transmission Date: 20151125
  Serious: Yes (Death)
  Sender: FDA-Public Use
  Company Number: None

PATIENT
  Sex: Female

DRUGS (2)
  1. CARBOPLATIN 600MG [Suspect]
     Active Substance: CARBOPLATIN
     Indication: UTERINE CANCER
     Dosage: EVERY 21 DAYS
     Route: 042
     Dates: start: 20150504, end: 20150804
  2. PACLITAXEL 300MG [Suspect]
     Active Substance: PACLITAXEL
     Dosage: EVERY 21 DAYS
     Route: 042

REACTIONS (1)
  - Death [None]

NARRATIVE: CASE EVENT DATE: 20150915
